FAERS Safety Report 12375165 (Version 1)
Quarter: 2016Q2

REPORT INFORMATION
  Report Type: Spontaneous
  Country: US (occurrence: US)
  Receive Date: 20160517
  Receipt Date: 20160517
  Transmission Date: 20160815
  Serious: Yes (Other)
  Sender: FDA-Public Use
  Company Number: US-MEDA-2016050041

PATIENT
  Age: 51 Year
  Sex: Female

DRUGS (1)
  1. SOMA [Suspect]
     Active Substance: CARISOPRODOL

REACTIONS (3)
  - Plasmapheresis [Unknown]
  - Abdominal pain lower [Unknown]
  - Diarrhoea [Unknown]
